FAERS Safety Report 7778288-9 (Version None)
Quarter: 2011Q3

REPORT INFORMATION
  Report Type: 
  Country: None (occurrence: None)
  Receive Date: 20110926
  Receipt Date: 20110923
  Transmission Date: 20111222
  Serious: Yes (Other)
  Sender: FDA-Public Use
  Company Number: US-PFIZER INC-2011227502

PATIENT
  Sex: Male
  Weight: 74.83 kg

DRUGS (4)
  1. CHANTIX [Suspect]
     Indication: SMOKING CESSATION THERAPY
     Dosage: 0.5 MG, 1X/DAY
     Route: 048
     Dates: start: 20110801, end: 20110801
  2. CHANTIX [Suspect]
     Dosage: 0.5 MG, 2X/DAY
     Route: 048
     Dates: start: 20110801, end: 20110101
  3. CHANTIX [Suspect]
     Dosage: 1 MG, 2X/DAY
     Route: 048
     Dates: start: 20110101, end: 20110901
  4. CLARITIN-D 24 HOUR [Concomitant]
     Indication: SINUS DISORDER
     Dosage: UNK

REACTIONS (5)
  - BLOOD POTASSIUM INCREASED [None]
  - CONSTIPATION [None]
  - BLOOD URINE PRESENT [None]
  - MALAISE [None]
  - INSOMNIA [None]
